FAERS Safety Report 11170412 (Version 1)
Quarter: 2015Q2

REPORT INFORMATION
  Report Type: Spontaneous
  Country: US (occurrence: US)
  Receive Date: 20150608
  Receipt Date: 20150608
  Transmission Date: 20150821
  Serious: No
  Sender: FDA-Public Use
  Company Number: US-DRREDDYS-USA/USA/14/0040249

PATIENT
  Age: 55 Year
  Sex: Male

DRUGS (2)
  1. MUCINEX ALLERGY [Suspect]
     Active Substance: FEXOFENADINE HYDROCHLORIDE
     Indication: PRODUCT USED FOR UNKNOWN INDICATION
     Route: 048
     Dates: start: 20140428
  2. MUCINEX ALLERGY [Suspect]
     Active Substance: FEXOFENADINE HYDROCHLORIDE
     Route: 048
     Dates: end: 20140506

REACTIONS (2)
  - Diarrhoea [Unknown]
  - Eyelid oedema [Unknown]

NARRATIVE: CASE EVENT DATE: 20140429
